FAERS Safety Report 9265886 (Version 1)
Quarter: 2013Q2

REPORT INFORMATION
  Report Type: Other
  Country: DE (occurrence: DE)
  Receive Date: 20130501
  Receipt Date: 20130501
  Transmission Date: 20140414
  Serious: Yes (Hospitalization)
  Sender: FDA-Public Use
  Company Number: DE-NICOBRDEVP-2013-07548

PATIENT
  Age: 55 Year
  Sex: Female

DRUGS (7)
  1. QUETIAPINE (UNKNOWN) [Suspect]
     Indication: PRODUCT USED FOR UNKNOWN INDICATION
     Dosage: 150 MG, DAILY
     Route: 048
  2. CLOMIPRAMINE HYDROCHLORIDE (UNKNOWN) [Suspect]
     Indication: PRODUCT USED FOR UNKNOWN INDICATION
     Dosage: 50 MG, DAILY
     Route: 048
     Dates: start: 20120802, end: 20120806
  3. CLOMIPRAMINE HYDROCHLORIDE (UNKNOWN) [Suspect]
     Dosage: 100 MG, DAILY
     Route: 048
     Dates: start: 20120730
  4. CLOMIPRAMINE HYDROCHLORIDE (UNKNOWN) [Suspect]
     Dosage: 50 MG, DAILY
     Route: 048
     Dates: start: 20120716
  5. PREGABALIN [Concomitant]
     Indication: PRODUCT USED FOR UNKNOWN INDICATION
     Dosage: 225 MG, DAILY
     Route: 065
  6. LAMOTRIGIN [Concomitant]
     Indication: PRODUCT USED FOR UNKNOWN INDICATION
     Dosage: 150 MG, DAILY
     Route: 065
     Dates: start: 20120802
  7. EUTHYROX [Concomitant]
     Indication: PRODUCT USED FOR UNKNOWN INDICATION
     Dosage: 50 MCG, UNK
     Route: 065

REACTIONS (1)
  - Urinary hesitation [Recovered/Resolved]
